FAERS Safety Report 5744072-0 (Version None)
Quarter: 2008Q2

REPORT INFORMATION
  Report Type: 
  Country: None (occurrence: None)
  Receive Date: 20080516
  Receipt Date: 20080516
  Transmission Date: 20081010
  Serious: Yes (Hospitalization)
  Sender: FDA-Public Use
  Company Number: None

PATIENT
  Age: 71 Year
  Sex: Male
  Weight: 84 kg

DRUGS (14)
  1. DOCETAXEL [Suspect]
     Indication: METASTATIC GASTRIC CANCER
     Dosage: 30MG/M2 IV BOLUS
     Route: 040
     Dates: start: 20080402, end: 20080423
  2. BEVACIZUMAB D1 OF 21D CYCLE [Suspect]
     Indication: METASTATIC GASTRIC CANCER
     Dosage: 10MG/MG2 IV BOLUS
     Route: 040
     Dates: start: 20080402, end: 20080416
  3. CISPLATIN [Suspect]
     Indication: METASTATIC GASTRIC CANCER
     Dosage: 25MG/M2  IV BOLUS
     Route: 040
     Dates: start: 20080402, end: 20080423
  4. IRINOTECAN D1 OF 21D  CYCLE [Suspect]
     Indication: METASTATIC GASTRIC CANCER
     Dosage: 50MG/MG2 IV BOLUS
     Route: 040
     Dates: start: 20080402, end: 20080423
  5. SUCRALFATE [Concomitant]
  6. PROCHLORPERAZINE MALEATE [Concomitant]
  7. FENTANYL TRANSDERMAL SYSTEM [Concomitant]
  8. LOPERAMIDE HCL [Concomitant]
  9. METFORMIN HCL [Concomitant]
  10. OMEPRAZOLE [Concomitant]
  11. METOCLOPRAMIDE HCL [Concomitant]
  12. ONDANSETRON HCL [Concomitant]
  13. BACLOFEN [Concomitant]
  14. MORPHINE [Concomitant]

REACTIONS (5)
  - DIARRHOEA [None]
  - NAUSEA [None]
  - NEUTROPENIA [None]
  - OESOPHAGITIS [None]
  - VOMITING [None]
